FAERS Safety Report 8832206 (Version 1)
Quarter: 2012Q4

REPORT INFORMATION
  Report Type: 
  Country: DE (occurrence: DE)
  Receive Date: 20121009
  Receipt Date: 20121009
  Transmission Date: 20130627
  Serious: Yes (Hospitalization)
  Sender: FDA-Public Use
  Company Number: DE-ASTRAZENECA-2012SE75631

PATIENT
  Sex: Male

DRUGS (5)
  1. METOPROLOL TARTATE [Suspect]
     Route: 048
  2. SIMVASTATIN [Concomitant]
     Route: 048
     Dates: end: 20120831
  3. XANEF [Concomitant]
     Route: 048
  4. METFORMIN DURA [Concomitant]
     Route: 048
     Dates: end: 201206
  5. ASPIRIN PROTECT [Concomitant]
     Route: 048

REACTIONS (1)
  - Drug eruption [Unknown]
